FAERS Safety Report 19860698 (Version 3)
Quarter: 2024Q3

REPORT INFORMATION
  Report Type: Report from Study
  Country: FR (occurrence: FR)
  Receive Date: 20210920
  Receipt Date: 20240906
  Transmission Date: 20241016
  Serious: Yes (Other)
  Sender: TAKEDA
  Company Number: FR-TAKEDA-2021TUS057640

PATIENT
  Age: 7 Year
  Sex: Female

DRUGS (15)
  1. TEDUGLUTIDE [Suspect]
     Active Substance: TEDUGLUTIDE
     Indication: Short-bowel syndrome
     Dosage: 1.2 MILLIGRAM, QD
     Route: 042
     Dates: start: 20210614, end: 20210820
  2. TEDUGLUTIDE [Suspect]
     Active Substance: TEDUGLUTIDE
     Indication: Short-bowel syndrome
     Dosage: 1.2 MILLIGRAM, QD
     Route: 042
     Dates: start: 20210614, end: 20210820
  3. TEDUGLUTIDE [Suspect]
     Active Substance: TEDUGLUTIDE
     Indication: Short-bowel syndrome
     Dosage: 1.2 MILLIGRAM, QD
     Route: 042
     Dates: start: 20210614, end: 20210820
  4. TEDUGLUTIDE [Suspect]
     Active Substance: TEDUGLUTIDE
     Indication: Short-bowel syndrome
     Dosage: 1.2 MILLIGRAM, QD
     Route: 042
     Dates: start: 20210614, end: 20210820
  5. TEDUGLUTIDE [Suspect]
     Active Substance: TEDUGLUTIDE
     Dosage: 1 MILLIGRAM, QD
     Route: 042
     Dates: start: 20210821, end: 20210909
  6. TEDUGLUTIDE [Suspect]
     Active Substance: TEDUGLUTIDE
     Dosage: 1 MILLIGRAM, QD
     Route: 042
     Dates: start: 20210821, end: 20210909
  7. TEDUGLUTIDE [Suspect]
     Active Substance: TEDUGLUTIDE
     Dosage: 1 MILLIGRAM, QD
     Route: 042
     Dates: start: 20210821, end: 20210909
  8. TEDUGLUTIDE [Suspect]
     Active Substance: TEDUGLUTIDE
     Dosage: 1 MILLIGRAM, QD
     Route: 042
     Dates: start: 20210821, end: 20210909
  9. CICLOPIROX OLAMINE [Concomitant]
     Active Substance: CICLOPIROX OLAMINE
     Indication: Gastrostomy tube site complication
     Dosage: 1 UNK
     Route: 061
     Dates: start: 202102, end: 202103
  10. FAMOTIDINE [Concomitant]
     Active Substance: FAMOTIDINE
     Indication: Short-bowel syndrome
     Dosage: 9999.00 UNK, QD
     Route: 037
  11. URSODIOL [Concomitant]
     Active Substance: URSODIOL
     Indication: Short-bowel syndrome
     Dosage: 250.00 MILLIGRAM, QD
     Route: 048
  12. TRAMADOL HYDROCHLORIDE [Concomitant]
     Active Substance: TRAMADOL HYDROCHLORIDE
     Indication: Pain
     Dosage: 100 MILLIGRAM, BID
     Route: 048
     Dates: start: 2022, end: 2023
  13. SANDOSTATIN [Concomitant]
     Active Substance: OCTREOTIDE ACETATE
     Indication: Pain
     Dosage: 10 MILLIGRAM, QD
     Route: 030
     Dates: start: 20220106, end: 2023
  14. ERYTHROCIN [Concomitant]
     Active Substance: ERYTHROMYCIN LACTOBIONATE
     Dosage: UNK
     Route: 065
     Dates: end: 20220621
  15. URSODIOL [Concomitant]
     Active Substance: URSODIOL
     Dosage: UNK
     Route: 048
     Dates: start: 20220621

REACTIONS (1)
  - Intestinal prolapse [Recovered/Resolved]

NARRATIVE: CASE EVENT DATE: 20210715
